FAERS Safety Report 5624869-8 (Version None)
Quarter: 2008Q1

REPORT INFORMATION
  Report Type: 
  Country: None (occurrence: None)
  Receive Date: 20080213
  Receipt Date: 20080201
  Transmission Date: 20080703
  Serious: Yes (Other)
  Sender: FDA-Public Use
  Company Number: US-PFIZER INC-2008011751

PATIENT
  Sex: Female
  Weight: 107 kg

DRUGS (5)
  1. CHANTIX [Suspect]
     Indication: SMOKING CESSATION THERAPY
     Dates: start: 20080130, end: 20080201
  2. CELEXA [Concomitant]
  3. HYDROCODONE BITARTRATE + ACETAMINOPHEN [Concomitant]
  4. AMLODIPINE [Concomitant]
  5. PAXIL CR [Concomitant]

REACTIONS (2)
  - FACIAL PALSY [None]
  - MYASTHENIA GRAVIS [None]
